FAERS Safety Report 10597861 (Version 1)
Quarter: 2014Q4

REPORT INFORMATION
  Report Type: Spontaneous
  Country: US (occurrence: None)
  Receive Date: 20141105
  Receipt Date: 20141105
  Transmission Date: 20150529
  Serious: Yes (Other)
  Sender: FDA-Public Use
  Company Number: 2014SA031627

PATIENT

DRUGS (1)
  1. TUBERCULIN PPD(M) 5 TU [Suspect]
     Active Substance: TUBERCULIN PURIFIED PROTEIN DERIVATIVE
     Indication: TUBERCULIN TEST
     Route: 023
     Dates: start: 201403, end: 201403

REACTIONS (4)
  - Hyperhidrosis [None]
  - Nervousness [None]
  - Loss of consciousness [None]
  - Tremor [None]

NARRATIVE: CASE EVENT DATE: 201403
